FAERS Safety Report 9054739 (Version 1)
Quarter: 2013Q1

REPORT INFORMATION
  Report Type: Report from Study
  Country: US (occurrence: US)
  Receive Date: 20130208
  Receipt Date: 20130208
  Transmission Date: 20140127
  Serious: Yes (Hospitalization)
  Sender: FDA-Public Use
  Company Number: US-BAYER-2013-014158

PATIENT
  Age: 62 Year
  Sex: Female

DRUGS (1)
  1. STIVARGA [Suspect]
     Indication: COLON CANCER
     Dosage: 160 MG DAILY
     Route: 048

REACTIONS (6)
  - Drug hypersensitivity [None]
  - Pyrexia [None]
  - Oral candidiasis [None]
  - Oedema peripheral [None]
  - Ascites [None]
  - Rash [None]
